FAERS Safety Report 5004049-X (Version None)
Quarter: 2006Q2

REPORT INFORMATION
  Report Type: 
  Country: None (occurrence: None)
  Receive Date: 20060517
  Receipt Date: 20060509
  Transmission Date: 20061013
  Serious: Yes (Hospitalization, Other)
  Sender: FDA-Public Use
  Company Number: US-JNJFOC-20060502166

PATIENT
  Sex: Male

DRUGS (17)
  1. REMICADE [Suspect]
     Route: 042
  2. ASACOL [Concomitant]
  3. FOLIC ACID [Concomitant]
     Route: 048
  4. PREDNISONE TAB [Concomitant]
     Route: 048
  5. LIDODERM [Concomitant]
     Dosage: CHANGE DAILY
  6. VICODIN [Concomitant]
  7. VICODIN [Concomitant]
  8. LASIX [Concomitant]
  9. ASPIRIN [Concomitant]
     Route: 048
  10. ADVAIR DISKUS 100/50 [Concomitant]
  11. ADVAIR DISKUS 100/50 [Concomitant]
  12. SPIROVAIR [Concomitant]
  13. VITAMIN D [Concomitant]
  14. POTASSIUM CHLORIDE [Concomitant]
  15. PROSCAR [Concomitant]
  16. FLOMAX [Concomitant]
  17. FERROUS SULFATE TAB [Concomitant]

REACTIONS (3)
  - COLITIS ULCERATIVE [None]
  - FALL [None]
  - HIP FRACTURE [None]
